FAERS Safety Report 6760509-2 (Version None)
Quarter: 2010Q2

REPORT INFORMATION
  Report Type: 
  Country: None (occurrence: None)
  Receive Date: 20100604
  Receipt Date: 20090609
  Transmission Date: 20101027
  Serious: Yes (Other)
  Sender: FDA-Public Use
  Company Number: 2009BH009756

PATIENT
  Age: 1 Year
  Sex: Male
  Weight: 12.2 kg

DRUGS (9)
  1. ADVATE [Suspect]
     Indication: HAEMOPHILIA
     Dosage: 25 IU/KG; AS NEEDED; IV : 25 IU/KG; AS NEEDED; IV : ;AS NEEDED
     Route: 042
     Dates: start: 20070127
  2. ADVATE [Suspect]
     Indication: HAEMORRHAGE
     Dosage: 25 IU/KG; AS NEEDED; IV : 25 IU/KG; AS NEEDED; IV : ;AS NEEDED
     Route: 042
     Dates: start: 20070127
  3. ADVATE [Suspect]
     Indication: HAEMORRHAGE INTRACRANIAL
     Dosage: 25 IU/KG; AS NEEDED; IV : 25 IU/KG; AS NEEDED; IV : ;AS NEEDED
     Route: 042
     Dates: start: 20070127
  4. ADVATE [Suspect]
     Indication: HAEMOPHILIA
     Dosage: 25 IU/KG; AS NEEDED; IV : 25 IU/KG; AS NEEDED; IV : ;AS NEEDED
     Route: 042
     Dates: start: 20080106
  5. ADVATE [Suspect]
     Indication: HAEMORRHAGE
     Dosage: 25 IU/KG; AS NEEDED; IV : 25 IU/KG; AS NEEDED; IV : ;AS NEEDED
     Route: 042
     Dates: start: 20080106
  6. ADVATE [Suspect]
     Indication: HAEMORRHAGE INTRACRANIAL
     Dosage: 25 IU/KG; AS NEEDED; IV : 25 IU/KG; AS NEEDED; IV : ;AS NEEDED
     Route: 042
     Dates: start: 20080106
  7. ADVATE [Suspect]
     Indication: HAEMOPHILIA
     Dosage: 25 IU/KG; AS NEEDED; IV : 25 IU/KG; AS NEEDED; IV : ;AS NEEDED
     Route: 042
     Dates: start: 20080111
  8. ADVATE [Suspect]
     Indication: HAEMORRHAGE
     Dosage: 25 IU/KG; AS NEEDED; IV : 25 IU/KG; AS NEEDED; IV : ;AS NEEDED
     Route: 042
     Dates: start: 20080111
  9. ADVATE [Suspect]
     Indication: HAEMORRHAGE INTRACRANIAL
     Dosage: 25 IU/KG; AS NEEDED; IV : 25 IU/KG; AS NEEDED; IV : ;AS NEEDED
     Route: 042
     Dates: start: 20080111

REACTIONS (1)
  - FACTOR VIII INHIBITION [None]
